FAERS Safety Report 21125458 (Version 1)
Quarter: 2022Q3

REPORT INFORMATION
  Report Type: Spontaneous
  Country: US (occurrence: US)
  Receive Date: 20220725
  Receipt Date: 20220725
  Transmission Date: 20221026
  Serious: Yes (Other)
  Sender: FDA-Public Use
  Company Number: US-ABBVIE-21K-163-4006664-00

PATIENT
  Sex: Female

DRUGS (1)
  1. ELAGOLIX [Suspect]
     Active Substance: ELAGOLIX
     Indication: Product used for unknown indication
     Route: 048
     Dates: end: 2021

REACTIONS (3)
  - Suicidal ideation [Unknown]
  - Endometriosis [Unknown]
  - Hyperthyroidism [Unknown]
